FAERS Safety Report 7003850-0 (Version None)
Quarter: 2010Q3

REPORT INFORMATION
  Report Type: 
  Country: None (occurrence: None)
  Receive Date: 20100920
  Receipt Date: 20100104
  Transmission Date: 20110219
  Serious: Yes (Other)
  Sender: FDA-Public Use
  Company Number: US-WYE-H12446809

PATIENT

DRUGS (1)
  1. TORISEL [Suspect]

REACTIONS (1)
  - ANAPHYLACTIC REACTION [None]
